FAERS Safety Report 24738007 (Version 1)
Quarter: 2024Q4

REPORT INFORMATION
  Report Type: Spontaneous
  Country: US (occurrence: US)
  Receive Date: 20241216
  Receipt Date: 20241216
  Transmission Date: 20250115
  Serious: Yes (Other)
  Sender: BIOCODEX
  Company Number: US-BIOCODEX2-202001163

PATIENT
  Age: 7 Year
  Sex: Male

DRUGS (2)
  1. STIRIPENTOL [Suspect]
     Active Substance: STIRIPENTOL
     Indication: Product used for unknown indication
     Route: 065
     Dates: start: 20170314
  2. FENFLURAMINE HYDROCHLORIDE [Suspect]
     Active Substance: FENFLURAMINE HYDROCHLORIDE
     Indication: Severe myoclonic epilepsy of infancy
     Route: 048

REACTIONS (1)
  - Decreased appetite [Recovered/Resolved]
